FAERS Safety Report 6844725-7 (Version None)
Quarter: 2010Q3

REPORT INFORMATION
  Report Type: 
  Country: None (occurrence: None)
  Receive Date: 20100715
  Receipt Date: 20100713
  Transmission Date: 20110219
  Serious: Yes (Other)
  Sender: FDA-Public Use
  Company Number: IN-ROXANE LABORATORIES, INC.-2010-RO-00835RO

PATIENT
  Age: 64 Year
  Sex: Female

DRUGS (6)
  1. RISPERIDONE [Suspect]
     Indication: SCHIZOPHRENIA
     Dosage: 2 MG
  2. RISPERIDONE [Suspect]
     Dosage: 4 MG
  3. TRIFLUOPERAZINE [Suspect]
     Indication: SCHIZOPHRENIA
     Dosage: 2 MG
  4. TRIHEXYPHENIDYL HCL [Suspect]
     Indication: SCHIZOPHRENIA
     Dosage: 4 MG
  5. CLONAZEPAM [Suspect]
     Indication: SCHIZOPHRENIA
     Dosage: 2 MG
  6. CLOZAPINE [Suspect]
     Indication: SCHIZOPHRENIA
     Dosage: 150 MG

REACTIONS (5)
  - PSYCHOTIC DISORDER [None]
  - PYREXIA [None]
  - RESPIRATORY DYSKINESIA [None]
  - TARDIVE DYSKINESIA [None]
  - VIRAL INFECTION [None]
